FAERS Safety Report 7659523-4 (Version None)
Quarter: 2011Q3

REPORT INFORMATION
  Report Type: 
  Country: None (occurrence: None)
  Receive Date: 20110804
  Receipt Date: 20110804
  Transmission Date: 20111222
  Serious: Yes (Life-Threatening, Hospitalization, Disabling)
  Sender: FDA-Public Use
  Company Number: None

PATIENT
  Age: 72 Year
  Sex: Female
  Weight: 61.2356 kg

DRUGS (2)
  1. PRAVACHOL [Suspect]
     Indication: BLOOD CHOLESTEROL INCREASED
     Dosage: 20MG QD ORAL
     Route: 048
  2. PRAVACHOL [Suspect]
     Indication: HYPERLIPIDAEMIA
     Dosage: 20MG QD ORAL
     Route: 048

REACTIONS (6)
  - ABASIA [None]
  - BLOOD PRESSURE INCREASED [None]
  - ASTHENIA [None]
  - HEADACHE [None]
  - EAR DISORDER [None]
  - MUSCLE DISORDER [None]
